FAERS Safety Report 8354359-3 (Version None)
Quarter: 2012Q2

REPORT INFORMATION
  Report Type: 
  Country: None (occurrence: None)
  Receive Date: 20120511
  Receipt Date: 20120503
  Transmission Date: 20120825
  Serious: Yes (Hospitalization)
  Sender: FDA-Public Use
  Company Number: JP-ASTRAZENECA-2012SE29698

PATIENT
  Age: 73 Year
  Sex: Female

DRUGS (2)
  1. CANDESARTAN CILEXETIL/HYDROCHLOROTHIAZIDE [Suspect]
     Indication: HYPERTENSION
     Route: 048
  2. CANDESARTAN CILEXETIL [Suspect]
     Indication: HYPERTENSION
     Route: 048

REACTIONS (3)
  - PNEUMONIA [None]
  - SWELLING FACE [None]
  - RASH [None]
